FAERS Safety Report 17759184 (Version 1)
Quarter: 2020Q2

REPORT INFORMATION
  Report Type: Spontaneous
  Country: US (occurrence: US)
  Receive Date: 20200508
  Receipt Date: 20200508
  Transmission Date: 20200714
  Serious: Yes (Other)
  Sender: FDA-Public Use
  Company Number: US-GILEAD-2020-0464340

PATIENT

DRUGS (1)
  1. TRUVADA [Suspect]
     Active Substance: EMTRICITABINE\TENOFOVIR DISOPROXIL FUMARATE
     Indication: PRODUCT USED FOR UNKNOWN INDICATION
     Dosage: UNK
     Route: 048
     Dates: start: 200711, end: 201809

REACTIONS (6)
  - Acute kidney injury [Unknown]
  - Bone density decreased [Unknown]
  - Bone loss [Unknown]
  - Chronic kidney disease [Unknown]
  - Renal failure [Unknown]
  - Osteonecrosis [Unknown]
